FAERS Safety Report 23936372 (Version 3)
Quarter: 2024Q3

REPORT INFORMATION
  Report Type: Spontaneous
  Country: US (occurrence: US)
  Receive Date: 20240604
  Receipt Date: 20240708
  Transmission Date: 20241017
  Serious: Yes (Hospitalization, Other)
  Sender: AUROBINDO
  Company Number: US-MLMSERVICE-20240513-PI058894-00050-1

PATIENT
  Age: 17 Year
  Sex: Female

DRUGS (1)
  1. AMLODIPINE [Suspect]
     Active Substance: AMLODIPINE BESYLATE
     Indication: Product used for unknown indication
     Dosage: 200 MILLIGRAM
     Route: 048

REACTIONS (6)
  - Haemodynamic instability [Recovering/Resolving]
  - Hypervolaemia [Recovering/Resolving]
  - Circulatory collapse [Recovering/Resolving]
  - Shock [Unknown]
  - Intentional overdose [Recovering/Resolving]
  - Intentional product misuse [Unknown]
